FAERS Safety Report 6826473-2 (Version None)
Quarter: 2010Q3

REPORT INFORMATION
  Report Type: 
  Country: None (occurrence: None)
  Receive Date: 20100709
  Receipt Date: 20100628
  Transmission Date: 20110219
  Serious: Yes (Other)
  Sender: FDA-Public Use
  Company Number: DE-JNJFOC-20100700219

PATIENT

DRUGS (2)
  1. REMICADE [Suspect]
     Indication: COLITIS ULCERATIVE
     Route: 042
  2. REMICADE [Suspect]
     Dosage: 5 MG/KG INDUCTION WEEK 0, 2, 6, THEN EVERY 8 WEEKS
     Route: 042

REACTIONS (2)
  - CLOSTRIDIAL INFECTION [None]
  - LUPUS-LIKE SYNDROME [None]
